FAERS Safety Report 8044450-3 (Version None)
Quarter: 2012Q1

REPORT INFORMATION
  Report Type: 
  Country: None (occurrence: None)
  Receive Date: 20120113
  Receipt Date: 20120105
  Transmission Date: 20120608
  Serious: Yes (Hospitalization)
  Sender: FDA-Public Use
  Company Number: TR-ELI_LILLY_AND_COMPANY-TR201112004197

PATIENT
  Sex: Female
  Weight: 49 kg

DRUGS (2)
  1. HUMALOG [Suspect]
  2. HUMALOG [Suspect]
     Indication: TYPE 1 DIABETES MELLITUS
     Dosage: UNK

REACTIONS (2)
  - WRONG DRUG ADMINISTERED [None]
  - DIABETIC KETOACIDOSIS [None]
